FAERS Safety Report 13708849 (Version 1)
Quarter: 2017Q2

REPORT INFORMATION
  Report Type: Report from Study
  Country: None (occurrence: PT)
  Receive Date: 20170630
  Receipt Date: 20170630
  Transmission Date: 20170830
  Serious: Yes (Hospitalization)
  Sender: FDA-Public Use
  Company Number: PT-ABBVIE-17K-130-2024425-00

PATIENT
  Age: 44 Year
  Sex: Female

DRUGS (1)
  1. HUMIRA [Suspect]
     Active Substance: ADALIMUMAB
     Indication: RHEUMATOID ARTHRITIS
     Route: 058
     Dates: start: 20161221, end: 20170510

REACTIONS (3)
  - Pulmonary oedema [Recovered/Resolved]
  - Chest pain [Recovered/Resolved]
  - Heart valve incompetence [Recovered/Resolved]

NARRATIVE: CASE EVENT DATE: 20170515
